FAERS Safety Report 17180902 (Version 2)
Quarter: 2020Q1

REPORT INFORMATION
  Report Type: Spontaneous
  Country: IL (occurrence: IL)
  Receive Date: 20191220
  Receipt Date: 20200107
  Transmission Date: 20200409
  Serious: Yes (Hospitalization, Other)
  Sender: FDA-Public Use
  Company Number: IL-BRISTOL-MYERS SQUIBB COMPANY-BMS-2019-121027

PATIENT
  Age: 69 Year
  Sex: Male

DRUGS (1)
  1. ELIQUIS [Suspect]
     Active Substance: APIXABAN
     Indication: PRODUCT USED FOR UNKNOWN INDICATION
     Route: 065

REACTIONS (2)
  - Anaemia [Unknown]
  - Cerebrovascular accident [Unknown]
